FAERS Safety Report 14754089 (Version 3)
Quarter: 2018Q2

REPORT INFORMATION
  Report Type: Spontaneous
  Country: US (occurrence: US)
  Receive Date: 20180412
  Receipt Date: 20180521
  Transmission Date: 20180711
  Serious: No
  Sender: FDA-Public Use
  Company Number: US-TAIHO ONCOLOGY INC-EU-2018-00483

PATIENT
  Sex: Female
  Weight: 78.72 kg

DRUGS (1)
  1. LONSURF [Suspect]
     Active Substance: TIPIRACIL HYDROCHLORIDE\TRIFLURIDINE
     Indication: COLON CANCER
     Dosage: CYCLE 2 STARTED ON 21/MAR/2018
     Route: 048
     Dates: start: 20160108, end: 2018

REACTIONS (14)
  - Nephrolithiasis [Unknown]
  - Osteoarthritis [Unknown]
  - Fatigue [Unknown]
  - Blood magnesium decreased [Unknown]
  - Hypertension [Unknown]
  - Muscle spasms [Unknown]
  - Arthralgia [Unknown]
  - Cholelithiasis [Unknown]
  - Renal cyst [Unknown]
  - Nausea [Unknown]
  - Disease progression [Unknown]
  - Acute sinusitis [Unknown]
  - Mouth ulceration [Unknown]
  - Flatulence [Unknown]

NARRATIVE: CASE EVENT DATE: 2018
